FAERS Safety Report 5119678-2 (Version None)
Quarter: 2006Q4

REPORT INFORMATION
  Report Type: 
  Country: None (occurrence: None)
  Receive Date: 20061003
  Receipt Date: 20060928
  Transmission Date: 20070319
  Serious: Yes (Other)
  Sender: FDA-Public Use
  Company Number: ES-ROCHE-465068

PATIENT
  Age: 23 Year
  Sex: Male

DRUGS (1)
  1. PEG-INTERFERON ALFA NOS [Suspect]
     Route: 065

REACTIONS (1)
  - LICHEN PLANUS [None]
